FAERS Safety Report 6732231-X (Version None)
Quarter: 2010Q2

REPORT INFORMATION
  Report Type: 
  Country: None (occurrence: None)
  Receive Date: 20100519
  Receipt Date: 20100510
  Transmission Date: 20101027
  Serious: Yes (Hospitalization)
  Sender: FDA-Public Use
  Company Number: A0858685A

PATIENT
  Age: 57 Year
  Sex: Male
  Weight: 88.6 kg

DRUGS (8)
  1. AVANDIA [Suspect]
     Dosage: 2MG TWICE PER DAY
     Route: 048
     Dates: end: 20070830
  2. AVANDAMET [Suspect]
     Dosage: .5TAB TWICE PER DAY
     Route: 048
     Dates: start: 20040101
  3. CLONAZEPAM [Concomitant]
  4. LIPITOR [Concomitant]
  5. LISINOPRIL [Concomitant]
  6. LOPRESSOR [Concomitant]
  7. METFORMIN HYDROCHLORIDE [Concomitant]
  8. ZETIA [Concomitant]

REACTIONS (7)
  - ARTERIOSCLEROSIS CORONARY ARTERY [None]
  - BLINDNESS [None]
  - CARDIAC FAILURE CONGESTIVE [None]
  - CORONARY ARTERY DISEASE [None]
  - MYOCARDIAL INFARCTION [None]
  - MYOCARDIAL ISCHAEMIA [None]
  - NEPHROPATHY [None]
